FAERS Safety Report 13479229 (Version 1)
Quarter: 2017Q2

REPORT INFORMATION
  Report Type: Spontaneous
  Country: US (occurrence: US)
  Receive Date: 20170425
  Receipt Date: 20170425
  Transmission Date: 20170830
  Serious: Yes (Other)
  Sender: FDA-Public Use
  Company Number: None

PATIENT
  Age: 92 Year
  Sex: Female
  Weight: 95.07 kg

DRUGS (1)
  1. PRADAXA [Suspect]
     Active Substance: DABIGATRAN ETEXILATE MESYLATE

REACTIONS (5)
  - Haematemesis [None]
  - International normalised ratio increased [None]
  - Renal failure [None]
  - Gastrointestinal haemorrhage [None]
  - Hypotension [None]

NARRATIVE: CASE EVENT DATE: 20170417
